FAERS Safety Report 5918504-9 (Version None)
Quarter: 2008Q4

REPORT INFORMATION
  Report Type: 
  Country: None (occurrence: None)
  Receive Date: 20081014
  Receipt Date: 20081014
  Transmission Date: 20090506
  Serious: No
  Sender: FDA-Public Use
  Company Number: None

PATIENT
  Age: 71 Year
  Sex: Female
  Weight: 54.4316 kg

DRUGS (2)
  1. ZOMETA [Suspect]
     Indication: METASTASES TO BONE
     Dosage: 4 MG ONCE A MONTH IV DRIP
     Route: 041
  2. ZOMETA [Suspect]
     Indication: PROPHYLAXIS
     Dosage: 4 MG ONCE A MONTH IV DRIP
     Route: 041

REACTIONS (6)
  - DRUG EFFECT DECREASED [None]
  - GINGIVAL DISORDER [None]
  - GINGIVAL INFECTION [None]
  - ORAL INFECTION [None]
  - OSTEONECROSIS [None]
  - TOOTH LOSS [None]
